FAERS Safety Report 10572724 (Version 1)
Quarter: 2014Q4

REPORT INFORMATION
  Report Type: Spontaneous
  Country: US (occurrence: US)
  Receive Date: 20141110
  Receipt Date: 20141110
  Transmission Date: 20150529
  Serious: No
  Sender: FDA-Public Use
  Company Number: US-BIOGENIDEC-2014BI117103

PATIENT
  Sex: Male

DRUGS (1)
  1. AVONEX [Suspect]
     Active Substance: INTERFERON BETA-1A
     Indication: MULTIPLE SCLEROSIS
     Route: 030
     Dates: start: 20131107

REACTIONS (4)
  - Hallucination [Recovered/Resolved]
  - Malaise [Recovered/Resolved]
  - Mobility decreased [Recovered/Resolved]
  - Pallor [Recovered/Resolved]
